FAERS Safety Report 4942480-9 (Version None)
Quarter: 2006Q1

REPORT INFORMATION
  Report Type: 
  Country: None (occurrence: None)
  Receive Date: 20060313
  Receipt Date: 20050309
  Transmission Date: 20060701
  Serious: No
  Sender: FDA-Public Use
  Company Number: US-GLAXOSMITHKLINE-A0548978A

PATIENT
  Age: 27 Year
  Sex: Female

DRUGS (1)
  1. NICORETTE (MINT) [Suspect]
     Dates: start: 20050307, end: 20050308

REACTIONS (5)
  - DIZZINESS [None]
  - HEADACHE [None]
  - MIGRAINE WITH AURA [None]
  - NAUSEA [None]
  - STOMACH DISCOMFORT [None]
